FAERS Safety Report 5400930-8 (Version None)
Quarter: 2007Q3

REPORT INFORMATION
  Report Type: 
  Country: None (occurrence: None)
  Receive Date: 20070730
  Receipt Date: 20070424
  Transmission Date: 20080115
  Serious: No
  Sender: FDA-Public Use
  Company Number: A0645611A

PATIENT
  Age: 4 Month
  Sex: Female
  Weight: 5 kg

DRUGS (1)
  1. ZANTAC 150 [Suspect]
     Indication: GASTROOESOPHAGEAL REFLUX DISEASE
     Dosage: .5TSP TWICE PER DAY
     Route: 048
     Dates: start: 20070215, end: 20070402

REACTIONS (2)
  - DRUG INEFFECTIVE [None]
  - OVERDOSE [None]
